FAERS Safety Report 4947514-3 (Version None)
Quarter: 2006Q1

REPORT INFORMATION
  Report Type: 
  Country: None (occurrence: None)
  Receive Date: 20060313
  Receipt Date: 20060228
  Transmission Date: 20060701
  Serious: Yes (Other)
  Sender: FDA-Public Use
  Company Number: 2006028718

PATIENT
  Age: 82 Year
  Sex: Male
  Weight: 90.7194 kg

DRUGS (2)
  1. VIAGRA [Suspect]
     Indication: ERECTILE DYSFUNCTION
     Dosage: 50 MG
     Dates: start: 20050701
  2. ACETYLSALICYLIC ACID SRT [Concomitant]

REACTIONS (7)
  - CATARACT OPERATION [None]
  - DRUG EFFECT DECREASED [None]
  - EYE DISORDER [None]
  - IMPAIRED DRIVING ABILITY [None]
  - PHOTOPHOBIA [None]
  - SELF-MEDICATION [None]
  - VISION BLURRED [None]
